FAERS Safety Report 8248118-X (Version None)
Quarter: 2012Q1

REPORT INFORMATION
  Report Type: 
  Country: None (occurrence: None)
  Receive Date: 20120330
  Receipt Date: 20120322
  Transmission Date: 20120608
  Serious: Yes (Disabling, Other)
  Sender: FDA-Public Use
  Company Number: US-ASTRAZENECA-2012SE01691

PATIENT
  Age: 59 Year
  Sex: Male

DRUGS (46)
  1. NEXIUM [Suspect]
     Indication: GASTROOESOPHAGEAL REFLUX DISEASE
     Route: 048
     Dates: start: 20010101
  2. PRILOSEC [Suspect]
     Indication: DYSPEPSIA
     Route: 048
     Dates: start: 20010101
  3. PRILOSEC [Suspect]
     Indication: ANXIETY
     Route: 048
     Dates: start: 20010101
  4. NAPROXEN [Concomitant]
     Dates: start: 20020101
  5. VIAGRA [Concomitant]
     Dates: start: 20010101
  6. SYMBALTA [Concomitant]
     Dates: start: 20010101
  7. ACTOPLUS MET [Concomitant]
     Dosage: 15MG/500MG
     Dates: start: 20010101
  8. CEPHALEXIN [Concomitant]
     Dates: start: 20010101
  9. NEXIUM [Suspect]
     Indication: HYPERSENSITIVITY
     Route: 048
     Dates: start: 20010101
  10. NEXIUM [Suspect]
     Route: 048
     Dates: start: 20020901
  11. NEXIUM [Suspect]
     Route: 048
     Dates: start: 20020901
  12. NEXIUM [Suspect]
     Route: 048
     Dates: start: 20020901
  13. PRILOSEC [Suspect]
     Indication: DEPRESSION
     Route: 048
     Dates: start: 20010101
  14. PRILOSEC [Suspect]
     Route: 048
     Dates: start: 20020901
  15. GLUCOTROL XL [Concomitant]
     Dates: start: 20010101
  16. GLUMETZA [Concomitant]
     Dates: start: 20010101
  17. JANUMET [Concomitant]
     Dosage: 50/500MG
     Dates: start: 20010101
  18. CLARITIN-D [Concomitant]
     Dates: start: 20010101
  19. NEXIUM [Suspect]
     Indication: PAIN MANAGEMENT
     Route: 048
     Dates: start: 20010101
  20. CELEBREX [Concomitant]
     Dosage: 200/100
     Dates: start: 20020101
  21. LIPITOR [Concomitant]
     Dosage: 10MG/20MG/40MG
     Dates: start: 20010101
  22. VYTORIN [Concomitant]
     Dosage: 10/20
     Dates: start: 20010101
  23. MOBIC [Concomitant]
     Dates: start: 20010101
  24. PROZAC [Concomitant]
     Dates: start: 20010101
  25. PRILOSEC [Suspect]
     Indication: PAIN MANAGEMENT
     Route: 048
     Dates: start: 20010101
  26. VIOXX [Concomitant]
     Dates: start: 20020101
  27. ACIPHEX [Concomitant]
     Dates: start: 20010101
  28. PRILOSEC [Suspect]
     Route: 048
     Dates: start: 20020901
  29. CIALIS [Concomitant]
     Dates: start: 20010101
  30. PALGIC [Concomitant]
     Dates: start: 20010101
  31. CYCLOBENZAPRIN HCL [Concomitant]
     Dates: start: 20010101
  32. NEXIUM [Suspect]
     Route: 048
     Dates: start: 20020901
  33. PRILOSEC [Suspect]
     Indication: GASTROOESOPHAGEAL REFLUX DISEASE
     Route: 048
     Dates: start: 20010101
  34. PRILOSEC [Suspect]
     Route: 048
     Dates: start: 20020901
  35. COZOR [Concomitant]
     Dates: start: 20010101
  36. GLUCOPHAGE [Concomitant]
     Dates: start: 20010101
  37. NEXIUM [Suspect]
     Indication: DYSPEPSIA
     Route: 048
     Dates: start: 20010101
  38. NEXIUM [Suspect]
     Indication: DEPRESSION
     Route: 048
     Dates: start: 20010101
  39. NEXIUM [Suspect]
     Indication: ANXIETY
     Route: 048
     Dates: start: 20010101
  40. PRILOSEC [Suspect]
     Route: 048
     Dates: start: 20020901
  41. BEXTRA [Concomitant]
     Dates: start: 20020101
  42. PRISTIQ [Concomitant]
     Dates: start: 20010101
  43. NEXIUM [Suspect]
     Route: 048
     Dates: start: 20020901
  44. NEXIUM [Suspect]
     Route: 048
     Dates: start: 20020901
  45. PRILOSEC [Suspect]
     Route: 048
     Dates: start: 20020901
  46. ZICAM [Concomitant]
     Dates: start: 20010101

REACTIONS (25)
  - HYPOKINESIA [None]
  - ANXIETY [None]
  - MEMORY IMPAIRMENT [None]
  - CEREBROVASCULAR ACCIDENT [None]
  - ERECTILE DYSFUNCTION [None]
  - ARTHRALGIA [None]
  - DEFORMITY [None]
  - HYPOAESTHESIA [None]
  - ASTHENIA [None]
  - BONE DISORDER [None]
  - MYOCARDIAL INFARCTION [None]
  - PARAESTHESIA [None]
  - BONE DENSITY DECREASED [None]
  - THROMBOSIS [None]
  - DISTURBANCE IN ATTENTION [None]
  - HEMIPLEGIA [None]
  - INTERVERTEBRAL DISC INJURY [None]
  - ABDOMINAL DISCOMFORT [None]
  - URINARY TRACT INFECTION [None]
  - ISCHAEMIC STROKE [None]
  - FEELINGS OF WORTHLESSNESS [None]
  - CARDIAC ARREST [None]
  - BONE PAIN [None]
  - DEPRESSION [None]
  - MUSCULOSKELETAL DISORDER [None]
